FAERS Safety Report 8163392-6 (Version None)
Quarter: 2012Q1

REPORT INFORMATION
  Report Type: 
  Country: None (occurrence: None)
  Receive Date: 20120224
  Receipt Date: 20120221
  Transmission Date: 20120608
  Serious: Yes (Other)
  Sender: FDA-Public Use
  Company Number: US-BRACCO-007611

PATIENT
  Age: 47 Year
  Sex: Male

DRUGS (5)
  1. COUMADIN [Concomitant]
  2. ISOVUE-370 [Suspect]
     Indication: DYSPNOEA
     Route: 042
     Dates: start: 20120211, end: 20120211
  3. ISOVUE-370 [Suspect]
     Indication: PULMONARY EMBOLISM
     Route: 042
     Dates: start: 20120211, end: 20120211
  4. PRILOSEC [Concomitant]
  5. ISOVUE-370 [Suspect]
     Indication: COMPUTERISED TOMOGRAM
     Route: 042
     Dates: start: 20120211, end: 20120211

REACTIONS (4)
  - FLUSHING [None]
  - PUPIL FIXED [None]
  - MENTAL STATUS CHANGES [None]
  - ALTERED STATE OF CONSCIOUSNESS [None]
